FAERS Safety Report 21735271 (Version 3)
Quarter: 2023Q1

REPORT INFORMATION
  Report Type: Spontaneous
  Country: US (occurrence: US)
  Receive Date: 20221215
  Receipt Date: 20230119
  Transmission Date: 20230417
  Serious: Yes (Hospitalization, Other)
  Sender: FDA-Public Use
  Company Number: US-JNJFOC-20221222930

PATIENT
  Age: 33 Year
  Sex: Female

DRUGS (3)
  1. INVEGA SUSTENNA [Suspect]
     Active Substance: PALIPERIDONE PALMITATE
     Indication: Product used for unknown indication
     Route: 030
  2. INVEGA SUSTENNA [Suspect]
     Active Substance: PALIPERIDONE PALMITATE
  3. INVEGA SUSTENNA [Suspect]
     Active Substance: PALIPERIDONE PALMITATE

REACTIONS (10)
  - Hospitalisation [Unknown]
  - Hallucination, visual [Not Recovered/Not Resolved]
  - Cardiac flutter [Unknown]
  - Illusion [Not Recovered/Not Resolved]
  - Emotional disorder [Not Recovered/Not Resolved]
  - Morbid thoughts [Unknown]
  - Feeling abnormal [Unknown]
  - Psychotic disorder [Unknown]
  - Delusion [Unknown]
  - Weight increased [Unknown]
